FAERS Safety Report 24175018 (Version 1)
Quarter: 2024Q3

REPORT INFORMATION
  Report Type: Spontaneous
  Country: US (occurrence: US)
  Receive Date: 20240805
  Receipt Date: 20240805
  Transmission Date: 20241017
  Serious: Yes (Death)
  Sender: PFIZER
  Company Number: US-PFIZER INC-202400228704

PATIENT
  Age: 73 Year
  Sex: Female
  Weight: 55.329 kg

DRUGS (1)
  1. VYNDAMAX [Suspect]
     Active Substance: TAFAMIDIS
     Indication: Cardiac amyloidosis
     Dosage: 61 MG, 1X/DAY
     Route: 048

REACTIONS (2)
  - Condition aggravated [Fatal]
  - Chronic kidney disease [Fatal]
